FAERS Safety Report 16764794 (Version 3)
Quarter: 2019Q4

REPORT INFORMATION
  Report Type: Spontaneous
  Country: FR (occurrence: FR)
  Receive Date: 20190903
  Receipt Date: 20191224
  Transmission Date: 20200122
  Serious: Yes (Life-Threatening, Hospitalization, Other)
  Sender: FDA-Public Use
  Company Number: FR-AUROBINDO-AUR-APL-2019-057412

PATIENT
  Age: 14 Year
  Sex: Female
  Weight: 74 kg

DRUGS (21)
  1. VORICONAZOLE. [Interacting]
     Active Substance: VORICONAZOLE
     Indication: ASPERGILLUS INFECTION
  2. MOPRAL [Interacting]
     Active Substance: OMEPRAZOLE
     Indication: VOMITING
     Dosage: UNK
     Route: 048
  3. TARGOCID [Concomitant]
     Active Substance: TEICOPLANIN
     Indication: APLASIA
     Dosage: 900 MILLIGRAM, ONCE A DAY (DOSE: 900 MG QD DURATION: CONTINUING)
     Route: 042
     Dates: start: 200509
  4. FORTUM [Concomitant]
     Active Substance: CEFTAZIDIME
     Indication: PYREXIA
     Dosage: UNK
     Route: 065
  5. NOXAFIL [Interacting]
     Active Substance: POSACONAZOLE
     Indication: MUCORMYCOSIS
  6. MYCOSTATINE [Concomitant]
     Active Substance: NYSTATIN
     Indication: PRODUCT USED FOR UNKNOWN INDICATION
     Dosage: DUR. OF TREATMENT TO EVENT: 13 DAY
     Route: 048
     Dates: start: 20050917
  7. ONDANSETRON [Concomitant]
     Active Substance: ONDANSETRON
     Indication: NAUSEA
     Dosage: 8 MILLIGRAM, TWO TIMES A DAY
     Route: 065
     Dates: start: 200508
  8. NOXAFIL [Interacting]
     Active Substance: POSACONAZOLE
     Indication: FUNGAL INFECTION
     Dosage: 200 MILLIGRAM, TOTAL
     Route: 048
     Dates: start: 20050930
  9. AMPHOTERICIN B. [Concomitant]
     Active Substance: AMPHOTERICIN B
     Indication: ANTIFUNGAL TREATMENT
     Dosage: UNK
     Route: 065
     Dates: start: 20050903
  10. ATARAX [Concomitant]
     Active Substance: HYDROXYZINE HYDROCHLORIDE
     Indication: NERVOUSNESS
     Dosage: 30 MILLIGRAM, ONCE A DAY 9DOSE: 30 MG TID DURATION: CONTINUING)
     Route: 042
     Dates: start: 200508
  11. PIPERACILLIN SODIUM;TAZOBACTAM SODIUM [Concomitant]
     Active Substance: PIPERACILLIN SODIUM\TAZOBACTAM SODIUM
     Indication: FEBRILE NEUTROPENIA
     Dosage: UNK
     Route: 042
  12. AMBISOME [Concomitant]
     Active Substance: AMPHOTERICIN B
     Indication: ASPERGILLUS INFECTION
     Dosage: DUR. OF TREATMENT TO EVENT: 19 DAY
     Route: 042
     Dates: start: 20050911
  13. PRIMPERAN [Concomitant]
     Active Substance: METOCLOPRAMIDE HYDROCHLORIDE
     Indication: NAUSEA
     Dosage: UNK, 3 TIMES A DAY(1 AMP TID DURATION: CONTINUING )
     Route: 042
     Dates: start: 200508
  14. POLARAMINE [Concomitant]
     Active Substance: DEXCHLORPHENIRAMINE MALEATE
     Indication: PRURITUS
     Dosage: UNK, 3 TIMES A DAY (DOSE: 1 AMP TID DURATION: CONTINUING)
     Route: 042
     Dates: start: 200508
  15. VORICONAZOLE. [Suspect]
     Active Substance: VORICONAZOLE
     Indication: FUNGAL INFECTION
     Dosage: 300 MILLIGRAM, TWO TIMES A DAY
     Route: 042
     Dates: start: 20050912, end: 20050929
  16. MOPRAL [Interacting]
     Active Substance: OMEPRAZOLE
     Indication: NAUSEA
     Dosage: UNK
     Route: 048
     Dates: start: 20050917
  17. CASPOFUNGIN [Concomitant]
     Active Substance: CASPOFUNGIN
     Indication: FUNGAL INFECTION
     Dosage: UNK,DUR. OF TREATMENT TO EVENT: 9 DAY
     Route: 042
     Dates: start: 20050917
  18. CASPOFUNGIN ACETATE. [Concomitant]
     Active Substance: CASPOFUNGIN ACETATE
     Indication: FUNGAL INFECTION
     Dosage: DUR. OF TREATMENT TO EVENT: 9 DAY
     Route: 042
     Dates: start: 20050921
  19. SILOMAT [Concomitant]
     Indication: PRODUCT USED FOR UNKNOWN INDICATION
     Dosage: UNK,DURATION: CONTINUING
     Route: 065
  20. VANCOMYCIN [Concomitant]
     Active Substance: VANCOMYCIN
     Indication: FEBRILE NEUTROPENIA
     Dosage: UNK
     Route: 042
  21. LEUPRORELIN ACETATE [Concomitant]
     Active Substance: LEUPROLIDE ACETATE
     Indication: PRODUCT USED FOR UNKNOWN INDICATION
     Dosage: UNK (DOSE: EVERY 3 MONTH DURATION)
     Route: 042
     Dates: start: 200508

REACTIONS (9)
  - Renal failure [Unknown]
  - Torsade de pointes [Recovered/Resolved]
  - Ventricular fibrillation [Recovered/Resolved]
  - Drug level increased [Unknown]
  - Cardiac arrest [Recovered/Resolved]
  - Hypomagnesaemia [Unknown]
  - Thrombocytopenia [Unknown]
  - Electrocardiogram QT prolonged [Recovered/Resolved]
  - Drug interaction [Recovered/Resolved]

NARRATIVE: CASE EVENT DATE: 20050930
